FAERS Safety Report 8417171-2 (Version None)
Quarter: 2012Q2

REPORT INFORMATION
  Report Type: 
  Country: None (occurrence: None)
  Receive Date: 20120606
  Receipt Date: 20120530
  Transmission Date: 20120825
  Serious: Yes (Other)
  Sender: FDA-Public Use
  Company Number: US-PFIZER INC-2012111699

PATIENT
  Sex: Male
  Weight: 73.923 kg

DRUGS (8)
  1. ATENOLOL [Concomitant]
     Dosage: UNK
  2. GEMFIBROZIL [Concomitant]
     Dosage: UNK
  3. REVATIO [Suspect]
     Indication: PULMONARY HYPERTENSION
     Dosage: 20 MG, 3X/DAY
     Route: 048
     Dates: start: 20110317
  4. AMBRISENTAN [Concomitant]
     Dosage: UNK
  5. ROSUVASTATIN [Concomitant]
     Dosage: UNK
  6. LASIX [Concomitant]
     Dosage: UNK
  7. OMEPRAZOLE [Concomitant]
     Dosage: UNK
  8. SPIRONOLACTONE [Concomitant]
     Dosage: UNK

REACTIONS (13)
  - BASAL GANGLIA STROKE [None]
  - OEDEMA [None]
  - ANAEMIA [None]
  - DYSARTHRIA [None]
  - HILAR LYMPHADENOPATHY [None]
  - PARATRACHEAL LYMPHADENOPATHY [None]
  - CEREBROVASCULAR ACCIDENT [None]
  - SPEECH DISORDER [None]
  - LEFT VENTRICULAR FAILURE [None]
  - LYMPHADENOPATHY [None]
  - GASTROINTESTINAL HAEMORRHAGE [None]
  - PLEURAL EFFUSION [None]
  - ARTERIOVENOUS MALFORMATION [None]
